FAERS Safety Report 10215955 (Version 1)
Quarter: 2014Q2

REPORT INFORMATION
  Report Type: Spontaneous
  Country: US (occurrence: None)
  Receive Date: 20140603
  Receipt Date: 20140603
  Transmission Date: 20141212
  Serious: Yes (Hospitalization)
  Sender: FDA-Public Use
  Company Number: None

PATIENT
  Age: 61 Year
  Sex: Male

DRUGS (3)
  1. ABACAVIR 300 MG 300 MG TAKE 1 TWICE DAILY [Suspect]
     Indication: HIV INFECTION
     Route: 048
     Dates: start: 20140505
  2. ISENTRESS? 400MG [Suspect]
     Indication: HIV INFECTION
     Route: 048
     Dates: start: 20140505
  3. LAMIVUDINE 150 MG TAKE 1 DAILY [Suspect]
     Indication: HIV INFECTION
     Route: 048
     Dates: start: 20140523

REACTIONS (1)
  - Drug dose omission [None]
